FAERS Safety Report 7062760-3 (Version None)
Quarter: 2010Q4

REPORT INFORMATION
  Report Type: 
  Country: None (occurrence: None)
  Receive Date: 20101026
  Receipt Date: 20100115
  Transmission Date: 20110411
  Serious: No
  Sender: FDA-Public Use
  Company Number: US-PFIZER INC-2010008510

PATIENT
  Sex: Female
  Weight: 63.5 kg

DRUGS (3)
  1. LIPITOR [Suspect]
     Indication: BLOOD CHOLESTEROL INCREASED
     Dosage: 10 MG, 1X/DAY
     Dates: start: 20100101
  2. OS-CAL [Suspect]
     Dosage: 500 MG, UNK
  3. NORVASC [Concomitant]
     Indication: HYPERTENSION

REACTIONS (1)
  - NAUSEA [None]
